FAERS Safety Report 5346053-8 (Version None)
Quarter: 2007Q2

REPORT INFORMATION
  Report Type: 
  Country: None (occurrence: None)
  Receive Date: 20070605
  Receipt Date: 20070525
  Transmission Date: 20071010
  Serious: Yes (Hospitalization)
  Sender: FDA-Public Use
  Company Number: SE-ELI_LILLY_AND_COMPANY-SE200705006859

PATIENT
  Age: 74 Year
  Sex: Female

DRUGS (1)
  1. CYMBALTA [Suspect]
     Indication: DEPRESSION
     Dates: start: 20060830, end: 20061230

REACTIONS (5)
  - FATIGUE [None]
  - LEUKOPENIA [None]
  - MUSCULAR WEAKNESS [None]
  - PNEUMOCOCCAL INFECTION [None]
  - SEPSIS [None]
